FAERS Safety Report 9616141 (Version 2)
Quarter: 2013Q4

REPORT INFORMATION
  Report Type: Spontaneous
  Country: US (occurrence: US)
  Receive Date: 20131011
  Receipt Date: 20131011
  Transmission Date: 20140711
  Serious: Yes (Other)
  Sender: FDA-Public Use
  Company Number: US-NAPPMUNDI-USA-2013-0099159

PATIENT
  Sex: Male
  Weight: 70.79 kg

DRUGS (3)
  1. BUTRANS [Suspect]
     Indication: PRODUCT USED FOR UNKNOWN INDICATION
     Dosage: 10 MCG/HR, DAILY
     Route: 062
  2. BUTRANS [Suspect]
     Dosage: 5 MCG/HR, UNK
  3. BUTRANS [Suspect]
     Dosage: UNK
     Route: 062

REACTIONS (1)
  - Urinary retention [Recovered/Resolved]
